FAERS Safety Report 6852960-7 (Version None)
Quarter: 2010Q3

REPORT INFORMATION
  Report Type: 
  Country: None (occurrence: None)
  Receive Date: 20100717
  Receipt Date: 20071126
  Transmission Date: 20110219
  Serious: No
  Sender: FDA-Public Use
  Company Number: US-PFIZER INC-2007100649

PATIENT
  Sex: Female
  Weight: 53.2 kg

DRUGS (1)
  1. CHANTIX [Suspect]
     Indication: SMOKING CESSATION THERAPY
     Dates: start: 20071107, end: 20071116

REACTIONS (7)
  - GASTRIC DISORDER [None]
  - HEADACHE [None]
  - IRRITABILITY [None]
  - MALAISE [None]
  - MOOD ALTERED [None]
  - NAUSEA [None]
  - VOMITING [None]
